FAERS Safety Report 6837459-6 (Version None)
Quarter: 2010Q3

REPORT INFORMATION
  Report Type: 
  Country: None (occurrence: None)
  Receive Date: 20100713
  Receipt Date: 20100709
  Transmission Date: 20110219
  Serious: Yes (Disabling)
  Sender: FDA-Public Use
  Company Number: US-MERCK-1007USA00984

PATIENT
  Age: 62 Year
  Sex: Female

DRUGS (1)
  1. ZOCOR [Suspect]
     Route: 048

REACTIONS (5)
  - GAIT DISTURBANCE [None]
  - MUSCLE INJURY [None]
  - PAIN [None]
  - TENDON INJURY [None]
  - TENDON RUPTURE [None]
